FAERS Safety Report 7438017-5 (Version None)
Quarter: 2011Q2

REPORT INFORMATION
  Report Type: 
  Country: None (occurrence: None)
  Receive Date: 20110426
  Receipt Date: 20100818
  Transmission Date: 20111010
  Serious: No
  Sender: FDA-Public Use
  Company Number: US-MYLANLABS-2010S1015138

PATIENT
  Age: 59 Year
  Sex: Female
  Weight: 51.71 kg

DRUGS (2)
  1. NITROFURANTOIN (MONOHYDRATE/MACROCRYSTALS) [Suspect]
     Indication: CYSTITIS
     Route: 048
     Dates: start: 20100601, end: 20100610
  2. RESTORIL [Concomitant]
     Indication: INSOMNIA
     Route: 048
     Dates: start: 20090101

REACTIONS (1)
  - HYPOAESTHESIA [None]
